FAERS Safety Report 8125261-7 (Version None)
Quarter: 2012Q1

REPORT INFORMATION
  Report Type: 
  Country: None (occurrence: None)
  Receive Date: 20120209
  Receipt Date: 20120201
  Transmission Date: 20120608
  Serious: Yes (Other)
  Sender: FDA-Public Use
  Company Number: US-BAXTER-2011BH036248

PATIENT
  Age: 58 Year
  Sex: Female

DRUGS (2)
  1. GAMMAGARD LIQUID [Suspect]
     Route: 042
     Dates: start: 20020101
  2. GAMMAGARD LIQUID [Suspect]
     Indication: HYPOGAMMAGLOBULINAEMIA
     Route: 042
     Dates: start: 20111109, end: 20111109

REACTIONS (20)
  - DYSPNOEA [None]
  - LETHARGY [None]
  - BACK PAIN [None]
  - FATIGUE [None]
  - MALAISE [None]
  - ERYTHEMA [None]
  - UPPER LIMB FRACTURE [None]
  - MASS [None]
  - HEADACHE [None]
  - INJECTION SITE HAEMATOMA [None]
  - FALL [None]
  - ANAPHYLACTIC SHOCK [None]
  - RESPIRATORY TRACT CONGESTION [None]
  - FLUSHING [None]
  - PYREXIA [None]
  - VISUAL IMPAIRMENT [None]
  - BLOOD PRESSURE INCREASED [None]
  - PRURITUS [None]
  - INTERVERTEBRAL DISC PROTRUSION [None]
  - URTICARIA [None]
